FAERS Safety Report 11805644 (Version 2)
Quarter: 2016Q1

REPORT INFORMATION
  Report Type: Spontaneous
  Country: US (occurrence: US)
  Receive Date: 20151207
  Receipt Date: 20160111
  Transmission Date: 20160525
  Serious: Yes (Other)
  Sender: FDA-Public Use
  Company Number: US-BEH-2015056286

PATIENT
  Age: 34 Year
  Sex: Female
  Weight: 84 kg

DRUGS (37)
  1. PREDNISONE. [Concomitant]
     Active Substance: PREDNISONE
  2. NORMAL SALINE [Concomitant]
     Active Substance: SODIUM CHLORIDE
  3. DOXYCYCLINE HYCLATE. [Concomitant]
     Active Substance: DOXYCYCLINE HYCLATE
  4. VERAMYST [Concomitant]
     Active Substance: FLUTICASONE FUROATE
  5. ACETAMINOPHEN. [Concomitant]
     Active Substance: ACETAMINOPHEN
  6. CLARITHROMYCIN. [Concomitant]
     Active Substance: CLARITHROMYCIN
  7. ZEMAIRA [Suspect]
     Active Substance: .ALPHA.1-PROTEINASE INHIBITOR HUMAN
     Dosage: WEEK OF 16-NOV-2015
  8. DIPHENHYDRAMINE. [Concomitant]
     Active Substance: DIPHENHYDRAMINE
  9. LMX [Concomitant]
     Active Substance: LIDOCAINE
  10. MOMETASONE FUROATE. [Concomitant]
     Active Substance: MOMETASONE FUROATE
  11. IMITREX [Concomitant]
     Active Substance: SUMATRIPTAN SUCCINATE
  12. ZEMAIRA [Suspect]
     Active Substance: .ALPHA.1-PROTEINASE INHIBITOR HUMAN
     Dates: start: 20150302
  13. ALIGN [Concomitant]
     Active Substance: BIFIDOBACTERIUM LONGUM SUBSP. INFANTIS
  14. PROVENTIL HFA [Concomitant]
     Active Substance: ALBUTEROL SULFATE
  15. ZEMAIRA [Suspect]
     Active Substance: .ALPHA.1-PROTEINASE INHIBITOR HUMAN
     Indication: ALPHA-1 ANTI-TRYPSIN DEFICIENCY
     Route: 042
     Dates: start: 20131015
  16. HEPARIN [Concomitant]
     Active Substance: HEPARIN SODIUM
  17. EPIPEN [Concomitant]
     Active Substance: EPINEPHRINE
  18. ESCITALOPRAM OXALATE. [Concomitant]
     Active Substance: ESCITALOPRAM OXALATE
  19. PANTOPRAZOLE SODIUM. [Concomitant]
     Active Substance: PANTOPRAZOLE SODIUM
  20. CYMBALTA [Concomitant]
     Active Substance: DULOXETINE HYDROCHLORIDE
  21. LYRICA [Concomitant]
     Active Substance: PREGABALIN
  22. LEVOCETIRIZINE DIHYDROCHLORIDE. [Concomitant]
     Active Substance: LEVOCETIRIZINE DIHYDROCHLORIDE
  23. CLARINEX-D [Concomitant]
     Active Substance: DESLORATADINE\PSEUDOEPHEDRINE SULFATE
  24. LEVOFLOXACIN. [Concomitant]
     Active Substance: LEVOFLOXACIN
  25. IPRATROPIUM BROMIDE. [Concomitant]
     Active Substance: IPRATROPIUM BROMIDE
  26. OXYCODONE HYDROCHLORIDE. [Concomitant]
     Active Substance: OXYCODONE HYDROCHLORIDE
  27. TIZANIDINE HCL [Concomitant]
     Active Substance: TIZANIDINE HYDROCHLORIDE
  28. OXYCODONE ACETAMINOPHEN [Concomitant]
     Active Substance: ACETAMINOPHEN\OXYCODONE HYDROCHLORIDE
  29. PROVENTIL HFA [Concomitant]
     Active Substance: ALBUTEROL SULFATE
  30. BACLOFEN. [Concomitant]
     Active Substance: BACLOFEN
  31. FLUTICASONE PROPIONATE. [Concomitant]
     Active Substance: FLUTICASONE PROPIONATE
  32. TOPIRAMATE. [Concomitant]
     Active Substance: TOPIRAMATE
  33. HYDROXYZINE PAMOATE. [Concomitant]
     Active Substance: HYDROXYZINE PAMOATE
  34. TRAZODONE HYDROCHLORIDE. [Concomitant]
     Active Substance: TRAZODONE HYDROCHLORIDE
  35. ADVAIR DISKUS [Concomitant]
     Active Substance: FLUTICASONE PROPIONATE\SALMETEROL XINAFOATE
  36. SINGULAIR [Concomitant]
     Active Substance: MONTELUKAST SODIUM
  37. CELEXA [Concomitant]
     Active Substance: CITALOPRAM HYDROBROMIDE

REACTIONS (1)
  - Respiratory tract infection [Recovering/Resolving]

NARRATIVE: CASE EVENT DATE: 20151111
